FAERS Safety Report 7504505-6 (Version None)
Quarter: 2011Q2

REPORT INFORMATION
  Report Type: 
  Country: None (occurrence: None)
  Receive Date: 20110525
  Receipt Date: 20110511
  Transmission Date: 20111010
  Serious: Yes (Other)
  Sender: FDA-Public Use
  Company Number: IN-CELGENEUS-078-20785-11011487

PATIENT
  Age: 65 Year
  Sex: Female

DRUGS (2)
  1. THALIDOMIDE [Suspect]
     Indication: MYELOFIBROSIS
     Route: 048
     Dates: start: 20061201, end: 20100701
  2. TAMOXIFEN CITRATE [Concomitant]
     Route: 065
     Dates: start: 20101001, end: 20101201

REACTIONS (1)
  - BREAST CANCER [None]
